FAERS Safety Report 17632411 (Version 2)
Quarter: 2021Q2

REPORT INFORMATION
  Report Type: Report from Study
  Country: US (occurrence: US)
  Receive Date: 20200406
  Receipt Date: 20210618
  Transmission Date: 20210716
  Serious: Yes (Other)
  Sender: FDA-Public Use
  Company Number: NVSC2020US092470

PATIENT
  Age: 59 Year
  Sex: Male
  Weight: 70.5 kg

DRUGS (1)
  1. LAMPRENE [Suspect]
     Active Substance: CLOFAZIMINE
     Indication: MYCOBACTERIUM AVIUM COMPLEX INFECTION
     Dosage: 100 MG
     Route: 048
     Dates: start: 20190628

REACTIONS (11)
  - Abdominal pain upper [Recovering/Resolving]
  - Haemoptysis [Recovering/Resolving]
  - Skin discolouration [Recovering/Resolving]
  - Speech disorder [Recovering/Resolving]
  - Asthenia [Recovering/Resolving]
  - Dyspnoea [Recovering/Resolving]
  - Musculoskeletal chest pain [Recovering/Resolving]
  - Quality of life decreased [Recovering/Resolving]
  - Cough [Recovering/Resolving]
  - Wheezing [Recovering/Resolving]
  - Productive cough [Recovering/Resolving]

NARRATIVE: CASE EVENT DATE: 20191204
